FAERS Safety Report 17786771 (Version 7)
Quarter: 2020Q4

REPORT INFORMATION
  Report Type: Report from Study
  Country: None (occurrence: US)
  Receive Date: 20200514
  Receipt Date: 20201016
  Transmission Date: 20210113
  Serious: Yes (Hospitalization, Other)
  Sender: FDA-Public Use
  Company Number: US-BIOVITRUM-2020US0979

PATIENT
  Age: 76 Year
  Sex: Female

DRUGS (5)
  1. ANORO INHALER [Concomitant]
  2. PREDNISONE. [Concomitant]
     Active Substance: PREDNISONE
  3. KINERET [Suspect]
     Active Substance: ANAKINRA
     Indication: GOUT
     Route: 058
     Dates: start: 20200216
  4. AMOXICILLIN. [Concomitant]
     Active Substance: AMOXICILLIN
  5. VITAMIN D3 [Concomitant]
     Active Substance: CHOLECALCIFEROL

REACTIONS (21)
  - Emphysema [Unknown]
  - Haemorrhage [Unknown]
  - Nausea [Unknown]
  - Injection site mass [Unknown]
  - Off label use [Not Recovered/Not Resolved]
  - Pain [Unknown]
  - Myalgia [Recovered/Resolved]
  - Rash macular [Unknown]
  - Tension [Unknown]
  - Animal bite [Unknown]
  - Swelling [Unknown]
  - Localised infection [Unknown]
  - Gout [Unknown]
  - Pruritus [Unknown]
  - Injection site pain [Unknown]
  - Injection site erythema [Unknown]
  - Injection site urticaria [Unknown]
  - Product dose omission issue [Unknown]
  - Cough [Unknown]
  - Pyrexia [Unknown]
  - Pneumonia [Unknown]

NARRATIVE: CASE EVENT DATE: 20200216
